FAERS Safety Report 10853688 (Version 2)
Quarter: 2015Q1

REPORT INFORMATION
  Report Type: Spontaneous
  Country: CZ (occurrence: CZ)
  Receive Date: 20150223
  Receipt Date: 20150313
  Transmission Date: 20150721
  Serious: Yes (Other)
  Sender: FDA-Public Use
  Company Number: CZ-AMGEN-CZESP2015014809

PATIENT
  Age: 58 Year
  Sex: Female
  Weight: 52 kg

DRUGS (9)
  1. TRITTICO [Concomitant]
     Active Substance: TRAZODONE HYDROCHLORIDE
     Indication: DEPRESSION
     Route: 048
  2. MAGNEX                             /00883901/ [Concomitant]
     Active Substance: UNSPECIFIED INGREDIENT
  3. FORMOTEROL [Concomitant]
     Active Substance: FORMOTEROL
     Indication: ASTHMA
     Route: 048
  4. SPIRIVA [Concomitant]
     Active Substance: TIOTROPIUM BROMIDE MONOHYDRATE
     Dosage: UNK, BID
     Route: 048
  5. PROLIA [Suspect]
     Active Substance: DENOSUMAB
     Indication: OSTEOPOROSIS POSTMENOPAUSAL
     Dosage: 60 MG, Q6MO
     Route: 058
     Dates: start: 20120726
  6. HELIDES [Concomitant]
     Indication: GASTROINTESTINAL DISORDER
     Route: 048
  7. EUPHYLLIN                          /00003701/ [Concomitant]
     Route: 048
  8. BERODUAL [Concomitant]
     Active Substance: FENOTEROL HYDROBROMIDE\IPRATROPIUM BROMIDE
  9. CALCITROL                          /00508501/ [Concomitant]
     Active Substance: CALCIUM CARBONATE\ERGOCALCIFEROL\RETINOL

REACTIONS (2)
  - Tooth disorder [Unknown]
  - Osteonecrosis of jaw [Unknown]

NARRATIVE: CASE EVENT DATE: 201408
